FAERS Safety Report 4844564-2 (Version None)
Quarter: 2005Q4

REPORT INFORMATION
  Report Type: 
  Country: None (occurrence: None)
  Receive Date: 20051129
  Receipt Date: 20051116
  Transmission Date: 20060501
  Serious: Yes (Death, Hospitalization, Other)
  Sender: FDA-Public Use
  Company Number: 2005BH002192

PATIENT
  Age: 57 Year
  Sex: Female

DRUGS (12)
  1. EXTRANEAL [Suspect]
     Indication: RENAL FAILURE CHRONIC
     Dosage: 2000 ML; EVERY DAY;IP
     Route: 033
     Dates: start: 20030818, end: 20040609
  2. DIANEAL [Concomitant]
  3. ALFAROL [Concomitant]
  4. DIART [Concomitant]
  5. AMLODIPINE BESYLATE [Concomitant]
  6. ALMARL [Concomitant]
  7. CARDENALIN [Concomitant]
  8. RENAGEL [Concomitant]
  9. LAXOBERON [Concomitant]
  10. PRIVINA [Concomitant]
  11. DASEN [Concomitant]
  12. LANTUS [Concomitant]

REACTIONS (8)
  - CACHEXIA [None]
  - GANGRENE [None]
  - GENERAL PHYSICAL HEALTH DETERIORATION [None]
  - INTESTINAL FUNCTIONAL DISORDER [None]
  - LEG AMPUTATION [None]
  - OEDEMA PERIPHERAL [None]
  - ORAL INTAKE REDUCED [None]
  - PERIPHERAL CIRCULATORY FAILURE [None]
